FAERS Safety Report 8308623-4 (Version None)
Quarter: 2012Q2

REPORT INFORMATION
  Report Type: 
  Country: None (occurrence: None)
  Receive Date: 20120421
  Receipt Date: 20120421
  Transmission Date: 20120825
  Serious: No
  Sender: FDA-Public Use
  Company Number: None

PATIENT
  Sex: Male

DRUGS (1)
  1. ENBREL [Suspect]
     Indication: ANKYLOSING SPONDYLITIS
     Dosage: 50MG QW SQ
     Route: 058
     Dates: start: 20110914

REACTIONS (2)
  - BLEEDING TIME PROLONGED [None]
  - HAEMORRHAGIC DIATHESIS [None]
